FAERS Safety Report 5105771-7 (Version None)
Quarter: 2006Q3

REPORT INFORMATION
  Report Type: 
  Country: None (occurrence: None)
  Receive Date: 20060915
  Receipt Date: 20060328
  Transmission Date: 20061208
  Serious: Yes (Congenital Anomaly)
  Sender: FDA-Public Use
  Company Number: FR-ROCHE-442164

PATIENT
  Age: 21 Year
  Sex: Female

DRUGS (3)
  1. CELLCEPT [Suspect]
     Route: 048
  2. PLAQUENIL [Suspect]
     Route: 048
  3. PREDNISOLONE [Suspect]
     Dosage: CORTICOID.
     Route: 048

REACTIONS (23)
  - ABORTION INDUCED [None]
  - ANOPHTHALMOS [None]
  - ANOTIA [None]
  - ATRIAL SEPTAL DEFECT [None]
  - DRUG EXPOSURE BEFORE PREGNANCY [None]
  - DYSMORPHISM [None]
  - GASTRIC DISORDER [None]
  - HEART DISEASE CONGENITAL [None]
  - HYPERTELORISM OF ORBIT [None]
  - INTRAVENTRICULAR HAEMORRHAGE [None]
  - LIMB MALFORMATION [None]
  - MICROGLOSSIA [None]
  - MICROSTOMIA [None]
  - MULTIPLE CONGENITAL ABNORMALITIES [None]
  - PLACENTAL DISORDER [None]
  - POLYDACTYLY [None]
  - POLYHYDRAMNIOS [None]
  - PULMONARY ARTERY STENOSIS CONGENITAL [None]
  - PULMONARY HYPOPLASIA [None]
  - PYELONEPHRITIS [None]
  - RENAL HYPOPLASIA [None]
  - SPINE MALFORMATION [None]
  - VENTRICULAR SEPTAL DEFECT [None]
